FAERS Safety Report 6773375-6 (Version None)
Quarter: 2010Q2

REPORT INFORMATION
  Report Type: 
  Country: None (occurrence: None)
  Receive Date: 20100614
  Receipt Date: 20100603
  Transmission Date: 20101027
  Serious: Yes (Death, Hospitalization)
  Sender: FDA-Public Use
  Company Number: 2010AC000114

PATIENT
  Age: 76 Year
  Sex: Female

DRUGS (2)
  1. DIGOXIN [Suspect]
     Dosage: ; PO
     Route: 048
     Dates: start: 20080101, end: 20080201
  2. DIGOXIN [Suspect]
     Indication: ATRIAL FIBRILLATION
     Dosage: 0.125 MG;QD; PO
     Route: 048
     Dates: start: 20071101, end: 20080101

REACTIONS (13)
  - ARRHYTHMIA [None]
  - ASTHENIA [None]
  - CARDIOMEGALY [None]
  - CHRONIC OBSTRUCTIVE PULMONARY DISEASE [None]
  - CORONARY ARTERY DISEASE [None]
  - ECONOMIC PROBLEM [None]
  - GASTROOESOPHAGEAL REFLUX DISEASE [None]
  - HYPONATRAEMIA [None]
  - MULTIPLE INJURIES [None]
  - OBSTRUCTIVE AIRWAYS DISORDER [None]
  - PULMONARY GRANULOMA [None]
  - UNEVALUABLE EVENT [None]
  - URINARY TRACT INFECTION [None]
